APPROVED DRUG PRODUCT: BIMATOPROST
Active Ingredient: BIMATOPROST
Strength: 0.03%
Dosage Form/Route: SOLUTION/DROPS;OPHTHALMIC
Application: A202505 | Product #001 | TE Code: AT
Applicant: MICRO LABS LTD
Approved: Sep 8, 2020 | RLD: No | RS: No | Type: RX